FAERS Safety Report 25247137 (Version 1)
Quarter: 2025Q2

REPORT INFORMATION
  Report Type: Spontaneous
  Country: US (occurrence: US)
  Receive Date: 20250428
  Receipt Date: 20250428
  Transmission Date: 20250716
  Serious: No
  Sender: Kenvue
  Company Number: US-KENVUE-20250406877

PATIENT

DRUGS (1)
  1. MENS ROGAINE EXTRA STRENGTH [Suspect]
     Active Substance: MINOXIDIL
     Indication: Alopecia
     Route: 061

REACTIONS (1)
  - Therapeutic product effect incomplete [Unknown]
